FAERS Safety Report 12942514 (Version 1)
Quarter: 2016Q4

REPORT INFORMATION
  Report Type: Spontaneous
  Country: US (occurrence: US)
  Receive Date: 20161115
  Receipt Date: 20161115
  Transmission Date: 20170207
  Serious: No
  Sender: FDA-Public Use
  Company Number: US-JNJFOC-20161024185

PATIENT
  Age: 59 Year
  Sex: Male
  Weight: 109.77 kg

DRUGS (6)
  1. INVEGA SUSTENNA [Suspect]
     Active Substance: PALIPERIDONE PALMITATE
     Indication: SCHIZOAFFECTIVE DISORDER
     Dosage: INITIATED 4 OR 5 YEARS AGO
     Route: 030
  2. HALOPERIDOL. [Concomitant]
     Active Substance: HALOPERIDOL
     Indication: DELUSION OF GRANDEUR
     Route: 065
  3. METFORMIN [Concomitant]
     Active Substance: METFORMIN HYDROCHLORIDE
     Indication: GLUCOSE TOLERANCE IMPAIRED
     Route: 048
     Dates: start: 2015
  4. DEPAKOTE [Suspect]
     Active Substance: DIVALPROEX SODIUM
     Indication: PRODUCT USED FOR UNKNOWN INDICATION
     Route: 065
     Dates: start: 2000
  5. LITHIUM. [Suspect]
     Active Substance: LITHIUM
     Indication: PRODUCT USED FOR UNKNOWN INDICATION
     Route: 065
     Dates: start: 2000
  6. HALOPERIDOL. [Concomitant]
     Active Substance: HALOPERIDOL
     Indication: DELUSION OF GRANDEUR
     Route: 065

REACTIONS (12)
  - Headache [Not Recovered/Not Resolved]
  - Weight increased [Unknown]
  - Hypokinesia [Unknown]
  - Gait disturbance [Unknown]
  - Dizziness [Not Recovered/Not Resolved]
  - Fatigue [Not Recovered/Not Resolved]
  - Drug intolerance [Unknown]
  - Restlessness [Unknown]
  - Lethargy [Not Recovered/Not Resolved]
  - Product packaging issue [Unknown]
  - Injection site hypoaesthesia [Unknown]
  - Dental caries [Unknown]

NARRATIVE: CASE EVENT DATE: 201601
